FAERS Safety Report 8135172-9 (Version None)
Quarter: 2012Q1

REPORT INFORMATION
  Report Type: 
  Country: None (occurrence: None)
  Receive Date: 20120214
  Receipt Date: 20120208
  Transmission Date: 20120608
  Serious: Yes (Other)
  Sender: FDA-Public Use
  Company Number: BR-PFIZER INC-2012034571

PATIENT
  Age: 82 Year
  Sex: Female
  Weight: 65 kg

DRUGS (2)
  1. CALCIUM [Concomitant]
     Indication: OSTEOARTHRITIS
  2. XALATAN [Suspect]
     Indication: INTRAOCULAR PRESSURE INCREASED
     Dosage: 3 UG (ONE DROP IN EACH EYE), 1X/DAY
     Route: 047
     Dates: start: 20090801

REACTIONS (3)
  - FALL [None]
  - GLAUCOMA [None]
  - CATARACT [None]
